FAERS Safety Report 6425901-4 (Version None)
Quarter: 2009Q4

REPORT INFORMATION
  Report Type: 
  Country: None (occurrence: None)
  Receive Date: 20091030
  Receipt Date: 20061016
  Transmission Date: 20100525
  Serious: Yes (Hospitalization)
  Sender: FDA-Public Use
  Company Number: 2009AC000274

PATIENT
  Age: 35 Year
  Sex: Male

DRUGS (9)
  1. DIGOXIN [Suspect]
     Dosage: 0.25 MG;QD;PO
     Route: 048
     Dates: start: 20071201
  2. NEURONTIN [Concomitant]
  3. METFORMIN [Concomitant]
  4. COREG [Concomitant]
  5. LISINOPRIL [Concomitant]
  6. LYRICA [Concomitant]
  7. FLEXERIL [Concomitant]
  8. NAPROSYN [Concomitant]
  9. PRILOSEC [Concomitant]

REACTIONS (15)
  - ABDOMINAL PAIN UPPER [None]
  - ANXIETY [None]
  - BACK PAIN [None]
  - CARDIAC FAILURE CONGESTIVE [None]
  - CHEST PAIN [None]
  - CONGESTIVE CARDIOMYOPATHY [None]
  - DIABETES MELLITUS [None]
  - DIARRHOEA [None]
  - HYPERGLYCAEMIA [None]
  - HYPERTENSION [None]
  - ILL-DEFINED DISORDER [None]
  - INJURY [None]
  - LIVER FUNCTION TEST ABNORMAL [None]
  - MUSCULOSKELETAL CHEST PAIN [None]
  - PAIN [None]
